FAERS Safety Report 8836087 (Version 2)
Quarter: 2012Q4

REPORT INFORMATION
  Report Type: 
  Country: US (occurrence: US)
  Receive Date: 20121011
  Receipt Date: 20121119
  Transmission Date: 20130627
  Serious: Yes (Hospitalization)
  Sender: FDA-Public Use
  Company Number: US-BAYER-2012-103775

PATIENT
  Age: 21 Year
  Sex: Female
  Weight: 82.99 kg

DRUGS (5)
  1. YAZ [Suspect]
     Dosage: UNK
     Dates: start: 20041110, end: 201111
  2. ANTI-ASTHMATICS [Concomitant]
     Indication: ASTHMA
     Dosage: UNK
     Dates: start: 200411
  3. ALBUTEROL [Concomitant]
     Indication: ASTHMA
     Dosage: UNK
     Dates: start: 20040502
  4. ALBUTEROL [Concomitant]
     Indication: ASTHMA
     Dosage: UNK
     Dates: start: 200411
  5. WARFARIN [Concomitant]
     Dosage: UNK
     Dates: start: 200411

REACTIONS (10)
  - Deep vein thrombosis [None]
  - Pulmonary embolism [None]
  - Gallbladder non-functioning [None]
  - Injury [None]
  - General physical health deterioration [None]
  - Anxiety [None]
  - Anhedonia [None]
  - Emotional distress [None]
  - Pain [None]
  - Pain [None]
